FAERS Safety Report 12684024 (Version 1)
Quarter: 2016Q3

REPORT INFORMATION
  Report Type: Spontaneous
  Country: US (occurrence: US)
  Receive Date: 20160825
  Receipt Date: 20160825
  Transmission Date: 20161109
  Serious: No
  Sender: FDA-Public Use
  Company Number: US-ALLERGAN-1663079US

PATIENT
  Sex: Male

DRUGS (1)
  1. ANDRODERM [Suspect]
     Active Substance: TESTOSTERONE
     Indication: ERECTILE DYSFUNCTION
     Dosage: UNK UNK, Q2WEEKS
     Dates: start: 201604

REACTIONS (3)
  - Erection increased [Not Recovered/Not Resolved]
  - Penis disorder [Not Recovered/Not Resolved]
  - Off label use [Unknown]
